FAERS Safety Report 4411240-X (Version None)
Quarter: 2004Q2

REPORT INFORMATION
  Report Type: 
  Country: None (occurrence: None)
  Receive Date: 20040630
  Receipt Date: 20040517
  Transmission Date: 20050107
  Serious: No
  Sender: FDA-Public Use
  Company Number: 04P-163-0261092-00

PATIENT
  Age: 52 Year
  Sex: Female
  Weight: 90.7194 kg

DRUGS (3)
  1. HUMIRA [Suspect]
     Indication: RHEUMATOID ARTHRITIS
     Dosage: 40 MG, 1 IN 2 WK, SUBCUTANEOUS
     Route: 058
     Dates: start: 20040516
  2. LEVOTHYROXINE SODIUM [Concomitant]
  3. CELECOXIB [Concomitant]

REACTIONS (6)
  - DYSPNOEA [None]
  - FEELING HOT [None]
  - HOT FLUSH [None]
  - INJECTION SITE BURNING [None]
  - NAUSEA [None]
  - TREMOR [None]
